FAERS Safety Report 6043704-X (Version None)
Quarter: 2009Q1

REPORT INFORMATION
  Report Type: 
  Country: None (occurrence: None)
  Receive Date: 20090120
  Receipt Date: 20090107
  Transmission Date: 20090719
  Serious: Yes (Other)
  Sender: FDA-Public Use
  Company Number: PHEH2009US00687

PATIENT
  Sex: Female

DRUGS (5)
  1. AREDIA [Suspect]
     Indication: MULTIPLE MYELOMA
     Dosage: 90 MG, QW3
     Dates: start: 20020101, end: 20030101
  2. ZOMETA [Suspect]
     Indication: MULTIPLE MYELOMA
     Dosage: 4 MG, QMO
     Dates: start: 20030101, end: 20040101
  3. PAXIL [Concomitant]
  4. QUININE [Concomitant]
  5. THALIDOMIDE [Concomitant]

REACTIONS (3)
  - BONE DISORDER [None]
  - IMPAIRED HEALING [None]
  - TOOTH EXTRACTION [None]
